FAERS Safety Report 6305190-1 (Version None)
Quarter: 2009Q3

REPORT INFORMATION
  Report Type: 
  Country: None (occurrence: None)
  Receive Date: 20090807
  Receipt Date: 20090730
  Transmission Date: 20100115
  Serious: Yes (Other)
  Sender: FDA-Public Use
  Company Number: GXKR2009GB08679

PATIENT

DRUGS (2)
  1. WARFARIN SODIUM [Suspect]
     Indication: ANTICOAGULANT THERAPY
  2. REMINYL /UNK/ (GALANTAMINE) [Suspect]
     Dosage: 8 MG, ORAL
     Route: 048
     Dates: start: 20090422

REACTIONS (4)
  - DIARRHOEA [None]
  - DRUG INTERACTION [None]
  - ELECTROCARDIOGRAM QT PROLONGED [None]
  - INTERNATIONAL NORMALISED RATIO INCREASED [None]
